FAERS Safety Report 9479567 (Version 4)
Quarter: 2013Q4

REPORT INFORMATION
  Report Type: Report from Study
  Country: BR (occurrence: BR)
  Receive Date: 20130827
  Receipt Date: 20131021
  Transmission Date: 20140711
  Serious: Yes (Death, Disabling)
  Sender: FDA-Public Use
  Company Number: BR-ROCHE-1264818

PATIENT
  Age: 60 Year
  Sex: Female

DRUGS (14)
  1. RITUXIMAB [Suspect]
     Indication: B-CELL LYMPHOMA
     Route: 042
  2. RHUPH20/RITUXIMAB [Suspect]
     Indication: B-CELL LYMPHOMA
     Dosage: LAST DOSE PRIOR TO SAE 12 AUG 2013
     Route: 058
     Dates: start: 20130515
  3. CYCLOPHOSPHAMIDE [Suspect]
     Indication: B-CELL LYMPHOMA
     Route: 065
  4. VINCRISTINE [Suspect]
     Indication: B-CELL LYMPHOMA
     Route: 065
  5. PREDNISOLONE [Suspect]
     Indication: B-CELL LYMPHOMA
     Route: 065
  6. ALLOPURINOL [Concomitant]
     Indication: PROPHYLAXIS
     Route: 065
  7. FUROSEMIDE [Concomitant]
     Indication: ASCITES
  8. OMEPRAZOLE [Concomitant]
     Indication: GASTRITIS PROPHYLAXIS
  9. SPIRONOLACTONE [Concomitant]
     Indication: HYPERTENSION
  10. INSULIN [Concomitant]
     Indication: DIABETES MELLITUS
  11. ONDANSETRON [Concomitant]
     Indication: PROPHYLAXIS OF NAUSEA AND VOMITING
     Route: 065
     Dates: start: 20130513
  12. LACTULONA [Concomitant]
     Indication: CONSTIPATION PROPHYLAXIS
     Route: 065
     Dates: start: 20130604
  13. ALUMINUM HYDROXIDE/MAGNESIUM HYDROXIDE [Concomitant]
     Indication: DYSPEPSIA
     Route: 065
     Dates: start: 20130614
  14. XYLOCAINE SPRAY [Concomitant]
     Route: 065
     Dates: start: 20130812

REACTIONS (1)
  - Febrile neutropenia [Fatal]
